FAERS Safety Report 21251224 (Version 1)
Quarter: 2022Q3

REPORT INFORMATION
  Report Type: Spontaneous
  Country: SE (occurrence: SE)
  Receive Date: 20220825
  Receipt Date: 20220825
  Transmission Date: 20221027
  Serious: Yes (Hospitalization, Other)
  Sender: FDA-Public Use
  Company Number: SE-GLENMARK PHARMACEUTICALS-2022GMK074084

PATIENT
  Sex: Female

DRUGS (3)
  1. OLANZAPINE [Suspect]
     Active Substance: OLANZAPINE
     Indication: Neuronal ceroid lipofuscinosis
     Dosage: 2.5 MILLIGRAM, ONCE A DAY
     Route: 065
  2. OLANZAPINE [Suspect]
     Active Substance: OLANZAPINE
     Dosage: 2.5 MILLIGRAM, ONCE A DAY, (REDUCED BACK TO 2.5 MG)
     Route: 065
  3. OLANZAPINE [Suspect]
     Active Substance: OLANZAPINE
     Dosage: 5 MILLIGRAM, ONCE A DAY, (DOSE INCREASED)
     Route: 065

REACTIONS (4)
  - Rhabdomyolysis [Recovering/Resolving]
  - Hyperthermia [Recovering/Resolving]
  - Condition aggravated [Recovering/Resolving]
  - Neuronal ceroid lipofuscinosis [Recovering/Resolving]
